FAERS Safety Report 23297792 (Version 3)
Quarter: 2024Q2

REPORT INFORMATION
  Report Type: Spontaneous
  Country: US (occurrence: US)
  Receive Date: 20231214
  Receipt Date: 20240521
  Transmission Date: 20240716
  Serious: Yes (Other)
  Sender: FDA-Public Use
  Company Number: US-KARYOPHARM-2023KPT001751

PATIENT

DRUGS (10)
  1. XPOVIO [Suspect]
     Active Substance: SELINEXOR
     Indication: Plasma cell myeloma
     Dosage: 80 MG, WEEKLY
     Route: 048
     Dates: start: 20230731, end: 202310
  2. XPOVIO [Suspect]
     Active Substance: SELINEXOR
     Dosage: 80 MG, WEEKLY
     Route: 048
     Dates: start: 202310
  3. XPOVIO [Suspect]
     Active Substance: SELINEXOR
     Dosage: 160 MG, WEEKLY
     Route: 048
     Dates: start: 202403, end: 2024
  4. XPOVIO [Suspect]
     Active Substance: SELINEXOR
     Dosage: 80 MG, WEEKLY
     Route: 048
     Dates: end: 202405
  5. ACYCLOVIR SODIUM [Concomitant]
     Active Substance: ACYCLOVIR SODIUM
  6. GABAPENTIN [Concomitant]
     Active Substance: GABAPENTIN
  7. MONTELUKAST SODIUM [Concomitant]
     Active Substance: MONTELUKAST SODIUM
  8. TIZANIDINE HYDROCHLORIDE [Concomitant]
     Active Substance: TIZANIDINE HYDROCHLORIDE
  9. ELIQUIS [Concomitant]
     Active Substance: APIXABAN
  10. SYMBICORT [Concomitant]
     Active Substance: BUDESONIDE\FORMOTEROL FUMARATE DIHYDRATE

REACTIONS (8)
  - Cataract [Unknown]
  - Somnolence [Unknown]
  - Tongue discomfort [Unknown]
  - Headache [Unknown]
  - Liver disorder [Unknown]
  - Upper respiratory tract infection [Unknown]
  - Nausea [Not Recovered/Not Resolved]
  - Vomiting [Not Recovered/Not Resolved]

NARRATIVE: CASE EVENT DATE: 20230101
